FAERS Safety Report 7721080-1 (Version None)
Quarter: 2011Q3

REPORT INFORMATION
  Report Type: 
  Country: None (occurrence: None)
  Receive Date: 20110831
  Receipt Date: 20110819
  Transmission Date: 20111222
  Serious: Yes (Other)
  Sender: FDA-Public Use
  Company Number: US-GENZYME-THYR-1000555

PATIENT
  Age: 70 Year
  Sex: Male

DRUGS (1)
  1. THYROGEN [Suspect]
     Indication: DIAGNOSTIC PROCEDURE
     Dosage: UNK UNK, QD
     Route: 030
     Dates: start: 20101025, end: 20101026

REACTIONS (1)
  - DERMATITIS EXFOLIATIVE [None]
